FAERS Safety Report 7431873-6 (Version None)
Quarter: 2011Q2

REPORT INFORMATION
  Report Type: 
  Country: None (occurrence: None)
  Receive Date: 20110422
  Receipt Date: 20110421
  Transmission Date: 20111010
  Serious: Yes (Other)
  Sender: FDA-Public Use
  Company Number: DE-PFIZER INC-2011086824

PATIENT

DRUGS (1)
  1. LYRICA [Suspect]

REACTIONS (2)
  - DYSPHAGIA [None]
  - NEOPLASM SKIN [None]
